FAERS Safety Report 5960111-6 (Version None)
Quarter: 2008Q4

REPORT INFORMATION
  Report Type: 
  Country: None (occurrence: None)
  Receive Date: 20081120
  Receipt Date: 20081112
  Transmission Date: 20090506
  Serious: Yes (Hospitalization)
  Sender: FDA-Public Use
  Company Number: FR-ABBOTT-08P-056-0487072-00

PATIENT
  Sex: Male

DRUGS (1)
  1. DEPAKENE [Suspect]
     Indication: EPILEPSY
     Route: 048
     Dates: end: 20080703

REACTIONS (4)
  - ASTHENOSPERMIA [None]
  - AZOOSPERMIA [None]
  - INFERTILITY MALE [None]
  - TERATOSPERMIA [None]
